FAERS Safety Report 21560855 (Version 2)
Quarter: 2022Q4

REPORT INFORMATION
  Report Type: Spontaneous
  Country: DE (occurrence: DE)
  Receive Date: 20221107
  Receipt Date: 20221207
  Transmission Date: 20230113
  Serious: Yes (Hospitalization)
  Sender: FDA-Public Use
  Company Number: DE-ADRED-06978-03

PATIENT
  Age: 69 Year
  Sex: Male

DRUGS (9)
  1. TORSEMIDE [Suspect]
     Active Substance: TORSEMIDE
     Indication: Product used for unknown indication
     Dosage: 10 MILLIGRAM (10 MG, 1-0-0-0)
     Route: 065
  2. RISPERIDONE [Suspect]
     Active Substance: RISPERIDONE
     Indication: Product used for unknown indication
     Dosage: 1 MILLIGRAM (1 MG, 0-0-1-0)
     Route: 065
  3. OLANZAPINE [Suspect]
     Active Substance: OLANZAPINE
     Indication: Product used for unknown indication
     Dosage: 5 MILLIGRAM (5 MG, 1-0-1-0)
     Route: 065
  4. CHOLECALCIFEROL [Concomitant]
     Active Substance: CHOLECALCIFEROL
     Dosage: 1000 INTERNATIONAL UNIT
     Route: 065
  5. METHIONINE [Concomitant]
     Active Substance: METHIONINE
     Dosage: 500 MILLIGRAM (500 MG, 1-0-1-0)
     Route: 065
  6. LORAZEPAM [Concomitant]
     Active Substance: LORAZEPAM
     Dosage: 1 MILLIGRAM (1 MG, 1-0-1-0)
     Route: 065
  7. POLYETHYLENE GLYCOL\POTASSIUM CHLORIDE\SODIUM BICARBONATE\SODIUM CHLOR [Concomitant]
     Active Substance: POLYETHYLENE GLYCOL\POTASSIUM CHLORIDE\SODIUM BICARBONATE\SODIUM CHLORIDE
     Dosage: 1-1-0-0
     Route: 065
  8. BIPERIDEN [Concomitant]
     Active Substance: BIPERIDEN
     Dosage: 2 MILLIGRAM (2 MG, 0-1-0-0)
     Route: 065
  9. BIPERIDEN [Concomitant]
     Active Substance: BIPERIDEN
     Dosage: 4 MILLIGRAM (4 MG, 1-0-0-0)
     Route: 065

REACTIONS (17)
  - Seizure [Unknown]
  - Quadriplegia [Unknown]
  - Paresis [Unknown]
  - Electrolyte imbalance [Unknown]
  - General physical health deterioration [Unknown]
  - Disturbance in attention [Unknown]
  - Hypertension [Unknown]
  - Faecaloma [Unknown]
  - Schizophrenia [Unknown]
  - Condition aggravated [Unknown]
  - Polyneuropathy [Unknown]
  - Paraplegia [Unknown]
  - Constipation [Unknown]
  - Abdominal pain [Unknown]
  - Anaemia [Unknown]
  - Dehydration [Unknown]
  - Hyponatraemia [Unknown]
